FAERS Safety Report 5811879-0 (Version None)
Quarter: 2008Q3

REPORT INFORMATION
  Report Type: 
  Country: None (occurrence: None)
  Receive Date: 20080716
  Receipt Date: 20080702
  Transmission Date: 20090109
  Serious: Yes (Other)
  Sender: FDA-Public Use
  Company Number: FR-ELI_LILLY_AND_COMPANY-FR200804003657

PATIENT
  Age: 75 Year
  Sex: Female
  Weight: 82 kg

DRUGS (9)
  1. CYMBALTA [Suspect]
     Indication: DEPRESSION
     Dosage: 60 MG, DAILY (1/D)
     Route: 048
     Dates: start: 20080313, end: 20080429
  2. AVANDIA [Concomitant]
     Indication: DIABETES MELLITUS
     Dosage: UNK, UNKNOWN
     Route: 048
  3. FOSAVANCE [Concomitant]
     Indication: BONE DISORDER
     Dosage: UNK, UNKNOWN
     Route: 048
     Dates: start: 20071127
  4. HYPERIUM [Concomitant]
     Indication: HYPERTENSION
     Dosage: UNK, UNKNOWN
     Route: 048
     Dates: start: 20060217
  5. BIPRETERAX [Concomitant]
     Indication: HYPERTENSION
     Dosage: UNK, UNKNOWN
     Route: 048
     Dates: start: 20060217
  6. METFORMIN [Concomitant]
     Indication: DIABETES MELLITUS
     Dosage: UNK, UNKNOWN
     Route: 048
     Dates: start: 20060217
  7. RIVOTRIL [Concomitant]
     Indication: INSOMNIA
     Dosage: 5 D/F, DAILY (1/D)
     Route: 065
     Dates: start: 20070406
  8. ZOLPIDEM [Concomitant]
     Indication: INSOMNIA
     Dosage: UNK, UNKNOWN
     Route: 048
  9. IXPRIM [Concomitant]
     Indication: PAIN
     Dates: start: 20080313

REACTIONS (5)
  - ANOREXIA [None]
  - HYPOGLYCAEMIA [None]
  - LOSS OF CONSCIOUSNESS [None]
  - VERTIGO [None]
  - WEIGHT INCREASED [None]
